FAERS Safety Report 8886517 (Version 2)
Quarter: 2012Q4

REPORT INFORMATION
  Report Type: 
  Country: US (occurrence: US)
  Receive Date: 20121105
  Receipt Date: 20121114
  Transmission Date: 20130627
  Serious: Yes (Hospitalization, Other)
  Sender: FDA-Public Use
  Company Number: PHEH2012US021614

PATIENT
  Age: 62 Year
  Sex: Female

DRUGS (1)
  1. EXTAVIA [Suspect]
     Dosage: 0.3 mg, QOD
     Route: 058

REACTIONS (4)
  - Multiple sclerosis [Recovered/Resolved]
  - Central nervous system inflammation [Recovered/Resolved]
  - Temporal arteritis [Unknown]
  - C-reactive protein increased [Unknown]
